FAERS Safety Report 13278603 (Version 1)
Quarter: 2017Q1

REPORT INFORMATION
  Report Type: Spontaneous
  Country: GB (occurrence: GB)
  Receive Date: 20170228
  Receipt Date: 20170228
  Transmission Date: 20170428
  Serious: Yes (Other)
  Sender: FDA-Public Use
  Company Number: GB-SEPTODONT-201401837

PATIENT
  Age: 28 Year
  Sex: Female

DRUGS (2)
  1. SEPTANEST 1:100,000 [Suspect]
     Active Substance: ARTICAINE HYDROCHLORIDE\EPINEPHRINE HYDROCHLORIDE
     Indication: LOCAL ANAESTHESIA
     Route: 004
     Dates: start: 201312
  2. EUROCAINE (EPINEPHRINE BITARTRATE\LIDOCAINE HYDROCHLORIDE) [Suspect]
     Active Substance: EPINEPHRINE BITARTRATE\LIDOCAINE HYDROCHLORIDE
     Indication: LOCAL ANAESTHESIA
     Route: 004
     Dates: start: 201312

REACTIONS (1)
  - Swelling face [Recovered/Resolved]

NARRATIVE: CASE EVENT DATE: 20131220
